FAERS Safety Report 6275863-8 (Version None)
Quarter: 2009Q3

REPORT INFORMATION
  Report Type: 
  Country: None (occurrence: None)
  Receive Date: 20090713
  Receipt Date: 20090701
  Transmission Date: 20100115
  Serious: Yes (Other)
  Sender: FDA-Public Use
  Company Number: AEUSA200900192

PATIENT

DRUGS (1)
  1. GAMUNEX [Suspect]
     Indication: IMMUNODEFICIENCY
     Dosage: IV
     Route: 042

REACTIONS (1)
  - ANTI-HBC IGG ANTIBODY POSITIVE [None]
